FAERS Safety Report 5192232-2 (Version None)
Quarter: 2006Q4

REPORT INFORMATION
  Report Type: 
  Country: None (occurrence: None)
  Receive Date: 20061220
  Receipt Date: 20061204
  Transmission Date: 20070319
  Serious: Yes (Hospitalization)
  Sender: FDA-Public Use
  Company Number: E2020-00712-SPO-JP

PATIENT
  Age: 83 Year
  Sex: Male

DRUGS (3)
  1. ARICEPT [Suspect]
     Indication: DEMENTIA ALZHEIMER'S TYPE
     Dosage: ORAL
     Route: 048
     Dates: start: 20050801, end: 20061110
  2. URIEF (SILODOSIN) [Suspect]
     Indication: DRUG USE FOR UNKNOWN INDICATION
     Dosage: 4 MG, 2 IN 1 D, ORAL
     Route: 048
     Dates: start: 20060501
  3. GRANPAM (TOFISOPAM) [Concomitant]

REACTIONS (2)
  - DEPRESSED LEVEL OF CONSCIOUSNESS [None]
  - UNRESPONSIVE TO STIMULI [None]
